FAERS Safety Report 17551514 (Version 1)
Quarter: 2020Q1

REPORT INFORMATION
  Report Type: Spontaneous
  Country: US (occurrence: US)
  Receive Date: 20200309
  Receipt Date: 20200309
  Transmission Date: 20200409
  Serious: Yes (Death, Life-Threatening, Disabling)
  Sender: FDA-Public Use
  Company Number: None

PATIENT
  Age: 79 Year
  Sex: Male
  Weight: 72.57 kg

DRUGS (9)
  1. GAMUNEX-C [Suspect]
     Active Substance: HUMAN IMMUNOGLOBULIN G
     Indication: POLYARTERITIS NODOSA
     Route: 006
     Dates: start: 2018, end: 20190806
  2. COUMADIN [Concomitant]
     Active Substance: WARFARIN SODIUM
  3. TORSEMIDE. [Concomitant]
     Active Substance: TORSEMIDE
  4. ZETIA [Concomitant]
     Active Substance: EZETIMIBE
  5. MEDROL [Concomitant]
     Active Substance: METHYLPREDNISOLONE
  6. PERCOCET [Concomitant]
     Active Substance: ACETAMINOPHEN\OXYCODONE HYDROCHLORIDE
  7. PLAQUENIL [Concomitant]
     Active Substance: HYDROXYCHLOROQUINE SULFATE
  8. ZOCOR [Concomitant]
     Active Substance: SIMVASTATIN
  9. GAMMA GLOBOLIN [Concomitant]

REACTIONS (7)
  - Peripheral swelling [None]
  - Product contamination [None]
  - Immobile [None]
  - Infusion related reaction [None]
  - Product quality issue [None]
  - Bedridden [None]
  - Pain [None]

NARRATIVE: CASE EVENT DATE: 20190806
